FAERS Safety Report 17983176 (Version 1)
Quarter: 2020Q3

REPORT INFORMATION
  Report Type: Spontaneous
  Country: US (occurrence: US)
  Receive Date: 20200703
  Receipt Date: 20200703
  Transmission Date: 20201103
  Serious: Yes (Death)
  Sender: FDA-Public Use
  Company Number: None

PATIENT
  Age: 23 Year
  Sex: Female
  Weight: 85.5 kg

DRUGS (1)
  1. NEXPLANON [Suspect]
     Active Substance: ETONOGESTREL
     Indication: CONTRACEPTION

REACTIONS (5)
  - Gastrointestinal disorder [None]
  - Female reproductive tract disorder [None]
  - Abdominal pain upper [None]
  - Mental disorder [None]
  - Exposure via breast milk [None]

NARRATIVE: CASE EVENT DATE: 20191001
